FAERS Safety Report 8453406-8 (Version None)
Quarter: 2012Q2

REPORT INFORMATION
  Report Type: 
  Country: None (occurrence: None)
  Receive Date: 20120620
  Receipt Date: 20120517
  Transmission Date: 20120825
  Serious: No
  Sender: FDA-Public Use
  Company Number: US-VERTEX PHARMACEUTICALS INC.-AE-2012-007208

PATIENT
  Age: 52 Year
  Sex: Male

DRUGS (5)
  1. INCIVEK [Suspect]
     Indication: HEPATITIS C
     Route: 048
     Dates: start: 20111114
  2. VYVANSE [Concomitant]
  3. PEGINTERFERON ALFA-2A [Concomitant]
  4. RIBAVIRIN [Concomitant]
  5. PERCOCET [Concomitant]

REACTIONS (2)
  - DRY SKIN [None]
  - SKIN FISSURES [None]
